FAERS Safety Report 9904995 (Version 3)
Quarter: 2015Q3

REPORT INFORMATION
  Report Type: Spontaneous
  Country: US (occurrence: US)
  Receive Date: 20140218
  Receipt Date: 20150811
  Transmission Date: 20151125
  Serious: No
  Sender: FDA-Public Use
  Company Number: US-GILEAD-2012-0049292

PATIENT
  Age: 37 Year
  Sex: Female

DRUGS (3)
  1. FLOLAN [Concomitant]
     Active Substance: EPOPROSTENOL SODIUM
  2. LETAIRIS [Suspect]
     Active Substance: AMBRISENTAN
     Indication: PRODUCT USED FOR UNKNOWN INDICATION
     Dosage: 10 MG, UNK
     Route: 048
     Dates: start: 20090318
  3. REVATIO [Suspect]
     Active Substance: SILDENAFIL CITRATE

REACTIONS (6)
  - Feeling jittery [Unknown]
  - Palpitations [Unknown]
  - Chills [Unknown]
  - Vomiting [Unknown]
  - Malaise [Unknown]
  - Flushing [Unknown]
